FAERS Safety Report 15842634 (Version 1)
Quarter: 2019Q1

REPORT INFORMATION
  Report Type: Spontaneous
  Country: CN (occurrence: CN)
  Receive Date: 20190118
  Receipt Date: 20190118
  Transmission Date: 20190417
  Serious: Yes (Other)
  Sender: FDA-Public Use
  Company Number: CN-MYLANLABS-2019M1003870

PATIENT
  Age: 34 Year
  Sex: Female

DRUGS (31)
  1. METHOTREXATE. [Suspect]
     Active Substance: METHOTREXATE
     Indication: OVARIAN GERM CELL TUMOUR MIXED
     Dosage: AS A PART OF EMA/EP REGIMEN
     Route: 065
  2. METHOTREXATE. [Suspect]
     Active Substance: METHOTREXATE
     Dosage: AS A PART OF EMA/EP REGIMEN; AFTER SECONDARY CYTOREDUCTIVE SURGERY
     Route: 065
  3. BLEOMYCIN [Concomitant]
     Active Substance: BLEOMYCIN SULFATE
     Indication: OVARIAN GERM CELL TUMOUR MIXED
     Dosage: AS A PART OF PVB REGIMEN
     Route: 065
  4. ETOPOSIDE. [Suspect]
     Active Substance: ETOPOSIDE
     Dosage: AS A PART OF EMA/EP REGIMEN; AFTER SECONDARY CYTOREDUCTIVE SURGERY
     Route: 065
  5. CISPLATIN. [Suspect]
     Active Substance: CISPLATIN
     Dosage: PEB REGIMEN WITH BEVACIZUMAB FOR THREE COURSES
     Route: 065
  6. BEVACIZUMAB. [Suspect]
     Active Substance: BEVACIZUMAB
     Dosage: WITH TIP REGIMEN
     Route: 065
  7. ICOTINIB [Concomitant]
     Active Substance: ICOTINIB
     Indication: OVARIAN GERM CELL TUMOUR MIXED
     Route: 065
  8. CISPLATIN. [Suspect]
     Active Substance: CISPLATIN
     Dosage: TIP REGIMEN
     Route: 065
  9. CISPLATIN. [Suspect]
     Active Substance: CISPLATIN
     Dosage: PEB REGIMEN; AFTER SECONDARY CYTOREDUCTIVE THERAPY
     Route: 065
  10. BEVACIZUMAB. [Suspect]
     Active Substance: BEVACIZUMAB
     Indication: OVARIAN GERM CELL TUMOUR MIXED
     Dosage: WITH PEB REGIMEN
     Route: 065
  11. ETOPOSIDE. [Suspect]
     Active Substance: ETOPOSIDE
     Dosage: AS A PART OF PEB REGIMEN; AFTER SECONDARY CYTOREDUCTIVE THERAPY
     Route: 065
  12. IFOSFAMIDE. [Suspect]
     Active Substance: IFOSFAMIDE
     Indication: OVARIAN GERM CELL TUMOUR MIXED
     Dosage: AS A PART OF TIP REGIMEN
     Route: 065
  13. VINCRISTINE [Suspect]
     Active Substance: VINCRISTINE
     Indication: OVARIAN GERM CELL TUMOUR MIXED
     Dosage: AS A PART OF PVB REGIMEN
     Route: 065
  14. DACTINOMYCIN [Suspect]
     Active Substance: DACTINOMYCIN
     Dosage: AS A PART OF EMA/EP REGIMEN; AFTER SECONDARY CYTOREDUCTIVE SURGERY
     Route: 065
  15. CISPLATIN. [Suspect]
     Active Substance: CISPLATIN
     Dosage: DIP REGIMEN; 6-DAY REGIMEN FOR THREE CYCLES
     Route: 065
  16. CISPLATIN. [Suspect]
     Active Substance: CISPLATIN
     Dosage: EMA/EP REGIMEN; AFTER SECONDARY CYTOREDUCTIVE SURGERY
     Route: 065
  17. VINCRISTINE [Suspect]
     Active Substance: VINCRISTINE
     Dosage: AS A PART OF FAEV REGIMEN
     Route: 065
  18. ETOPOSIDE. [Suspect]
     Active Substance: ETOPOSIDE
     Dosage: AS A PART OF PEB REGIMEN FOR THREE COURSES
     Route: 065
  19. ETOPOSIDE. [Suspect]
     Active Substance: ETOPOSIDE
     Dosage: AS A PART OF FAEV REGIMEN
     Route: 065
  20. DACTINOMYCIN [Suspect]
     Active Substance: DACTINOMYCIN
     Dosage: AS A PART OF FAEV REGIMEN
     Route: 065
  21. DOCETAXEL. [Suspect]
     Active Substance: DOCETAXEL
     Indication: OVARIAN GERM CELL TUMOUR MIXED
     Dosage: AS A PART OF DIP REGIMEN
     Route: 065
  22. BEVACIZUMAB. [Suspect]
     Active Substance: BEVACIZUMAB
     Dosage: WITH DIP REGIMEN ; 6-DAY REGIMEN FOR THREE CYCLES
     Route: 065
  23. BLEOMYCIN [Concomitant]
     Active Substance: BLEOMYCIN SULFATE
     Dosage: AS A PART OF PEB REGIMEN
     Route: 065
  24. CISPLATIN. [Suspect]
     Active Substance: CISPLATIN
     Indication: OVARIAN GERM CELL TUMOUR MIXED
     Dosage: EMA/EP REGIMEN
     Route: 065
  25. CISPLATIN. [Suspect]
     Active Substance: CISPLATIN
     Dosage: PVB REGIMEN; 3-DAY REGIMEN
     Route: 065
  26. PACLITAXEL. [Suspect]
     Active Substance: PACLITAXEL
     Indication: OVARIAN GERM CELL TUMOUR MIXED
     Dosage: AS A PART OF TIP REGIMEN
     Route: 065
  27. BLEOMYCIN [Concomitant]
     Active Substance: BLEOMYCIN SULFATE
     Dosage: AS A PART OF PEB REGIMEN; AFTER SECONDARY CYTOREDUCTIVE THERAPY
     Route: 065
  28. ETOPOSIDE. [Suspect]
     Active Substance: ETOPOSIDE
     Indication: OVARIAN GERM CELL TUMOUR MIXED
     Dosage: AS A PART OF EMA/EP REGIMEN
     Route: 065
  29. DACTINOMYCIN [Suspect]
     Active Substance: DACTINOMYCIN
     Indication: OVARIAN GERM CELL TUMOUR MIXED
     Dosage: AS A PART OF EMA/EP REGIMEN
     Route: 065
  30. IFOSFAMIDE. [Suspect]
     Active Substance: IFOSFAMIDE
     Dosage: AS A PART OF DIP REGIMEN
     Route: 065
  31. FUDR [Suspect]
     Active Substance: FLOXURIDINE
     Indication: OVARIAN GERM CELL TUMOUR MIXED
     Dosage: AS A PART OF FAEV REGIMEN
     Route: 065

REACTIONS (6)
  - Drug ineffective [Unknown]
  - Neurotoxicity [Unknown]
  - Renal impairment [Recovering/Resolving]
  - Fatigue [Unknown]
  - Drug resistance [Unknown]
  - Bone marrow failure [Unknown]
